FAERS Safety Report 6063329-X (Version None)
Quarter: 2009Q1

REPORT INFORMATION
  Report Type: 
  Country: None (occurrence: None)
  Receive Date: 20090203
  Receipt Date: 20090122
  Transmission Date: 20090719
  Serious: Yes (Hospitalization, Other)
  Sender: FDA-Public Use
  Company Number: JP-PFIZER INC-2008090349

PATIENT

DRUGS (10)
  1. LIPITOR [Suspect]
     Indication: HYPERLIPIDAEMIA
     Dosage: 10 MG, 1X/DAY
     Route: 048
     Dates: start: 20071007, end: 20071012
  2. ASPIRIN [Suspect]
     Indication: ANTIPLATELET THERAPY
     Dosage: 100 MG, 1X/DAY
     Route: 048
     Dates: start: 20071007, end: 20071026
  3. AMARYL [Suspect]
     Indication: DIABETES MELLITUS
     Dosage: 1 MG, 1X/DAY
     Route: 048
     Dates: start: 20071017, end: 20071026
  4. MEVALOTIN [Suspect]
     Indication: HYPERLIPIDAEMIA
     Dosage: 10 MG, 1X/DAY
     Route: 048
     Dates: start: 20071017, end: 20071025
  5. PLAVIX [Suspect]
     Indication: ANTIPLATELET THERAPY
     Dosage: 75 MG, 1X/DAY
     Route: 048
     Dates: start: 20071012, end: 20071027
  6. PANALDINE [Suspect]
     Indication: ANTIPLATELET THERAPY
     Dosage: 100 MG, 2X/DAY
     Route: 048
     Dates: start: 20071007, end: 20071012
  7. ALDACTONE [Concomitant]
     Indication: CARDIAC FAILURE
     Dosage: 25 MG, 1X/DAY
     Route: 048
     Dates: start: 20071007, end: 20071026
  8. TANATRIL ^ALGOL^ [Concomitant]
     Indication: HYPERTENSION
     Dosage: 5 MG, 1X/DAY
     Route: 048
     Dates: start: 20071007, end: 20071026
  9. TAKEPRON [Concomitant]
     Indication: REFLUX OESOPHAGITIS
     Dosage: 15 MG, 1X/DAY
     Route: 048
     Dates: start: 20071007, end: 20071025
  10. PLETAL [Concomitant]
     Indication: ANTIPLATELET THERAPY
     Dosage: 100 MG, 2X/DAY
     Route: 048
     Dates: start: 20071007, end: 20071009

REACTIONS (2)
  - DRUG ERUPTION [None]
  - LIVER DISORDER [None]
